FAERS Safety Report 25534276 (Version 2)
Quarter: 2025Q3

REPORT INFORMATION
  Report Type: Spontaneous
  Country: CA (occurrence: CA)
  Receive Date: 20250709
  Receipt Date: 20250908
  Transmission Date: 20251021
  Serious: Yes (Other)
  Sender: PFIZER
  Company Number: CA-PFIZER INC-202500136899

PATIENT
  Age: 12 Year
  Sex: Female

DRUGS (1)
  1. ABRILADA [Suspect]
     Active Substance: ADALIMUMAB-AFZB
     Indication: Crohn^s disease
     Route: 058
     Dates: start: 20240802

REACTIONS (4)
  - Suicidal ideation [Unknown]
  - Social problem [Unknown]
  - Social avoidant behaviour [Unknown]
  - Intentional dose omission [Unknown]
